FAERS Safety Report 25095749 (Version 3)
Quarter: 2025Q3

REPORT INFORMATION
  Report Type: Report from Study
  Country: US (occurrence: US)
  Receive Date: 20250319
  Receipt Date: 20250803
  Transmission Date: 20251020
  Serious: Yes (Hospitalization, Other)
  Sender: ALEXION PHARMACEUTICALS
  Company Number: US-AstraZeneca-CH-00825446A

PATIENT
  Sex: Male

DRUGS (1)
  1. ULTOMIRIS [Suspect]
     Active Substance: RAVULIZUMAB-CWVZ
     Indication: Paroxysmal nocturnal haemoglobinuria
     Route: 065

REACTIONS (7)
  - Thrombosis [Unknown]
  - Aortic dissection [Unknown]
  - Suture rupture [Unknown]
  - Wound [Unknown]
  - Fatigue [Unknown]
  - Scar [Unknown]
  - Impaired healing [Unknown]
